FAERS Safety Report 8590292 (Version 2)
Quarter: 2013Q2

REPORT INFORMATION
  Report Type: Report from Study
  Country: JP (occurrence: JP)
  Receive Date: 20120601
  Receipt Date: 20130503
  Transmission Date: 20140414
  Serious: No
  Sender: FDA-Public Use
  Company Number: JP-B.I. PHARMACEUTICALS,INC./RIDGEFIELD-2012-EU-02891GD

PATIENT
  Sex: 0

DRUGS (2)
  1. PRADAXA [Suspect]
     Indication: ANTICOAGULANT THERAPY
  2. HEPARIN [Suspect]
     Indication: ANTICOAGULANT THERAPY
     Dosage: BOLUS OF 100 UNITS/KG, FOLLOWE BY CONTINUOUS INFUSION AT 400 UNITS/H TO MAINTAIN ACT WITHIN 300-350
     Route: 042

REACTIONS (1)
  - Pericardial effusion [Unknown]
